FAERS Safety Report 9263413 (Version 1)
Quarter: 2013Q2

REPORT INFORMATION
  Report Type: Report from Study
  Country: US (occurrence: US)
  Receive Date: 20130430
  Receipt Date: 20130430
  Transmission Date: 20140414
  Serious: No
  Sender: FDA-Public Use
  Company Number: US-ABBOTT-12P-163-0964404-00

PATIENT
  Sex: Female
  Weight: 52.21 kg

DRUGS (1)
  1. CREON [Suspect]
     Indication: PANCREATITIS
     Dosage: 2 CAPS, 3 IN 1 DAY
     Dates: start: 2009

REACTIONS (2)
  - Eczema [Recovering/Resolving]
  - Abdominal pain [Recovered/Resolved]
